FAERS Safety Report 4745727-7 (Version None)
Quarter: 2005Q3

REPORT INFORMATION
  Report Type: 
  Country: None (occurrence: None)
  Receive Date: 20050815
  Receipt Date: 20050815
  Transmission Date: 20060218
  Serious: Yes (Hospitalization)
  Sender: FDA-Public Use
  Company Number: None

PATIENT
  Age: 81 Year
  Sex: Male
  Weight: 74.4 kg

DRUGS (3)
  1. FLECAINIDE ACETATE [Suspect]
     Dosage: 500MG, Q12H, BY MOUTH
     Route: 048
     Dates: start: 20041119, end: 20041119
  2. ZOCOR [Concomitant]
  3. FUROSEMIDE [Concomitant]

REACTIONS (2)
  - DIZZINESS [None]
  - HYPOTENSION [None]
